FAERS Safety Report 5141661-1 (Version None)
Quarter: 2006Q4

REPORT INFORMATION
  Report Type: 
  Country: None (occurrence: None)
  Receive Date: 20061030
  Receipt Date: 20061030
  Transmission Date: 20070319
  Serious: No
  Sender: FDA-Public Use
  Company Number: None

PATIENT
  Age: 67 Year
  Sex: Male
  Weight: 77.9 kg

DRUGS (2)
  1. LEVOFLOXACIN [Suspect]
     Indication: STREPTOCOCCAL INFECTION
     Dosage: 500 MG Q 24 HR IV
     Route: 042
     Dates: start: 20051205, end: 20051215
  2. VANCOMYCIN [Suspect]
     Indication: STREPTOCOCCAL INFECTION
     Dosage: 1 GM Q 24 HR IV
     Route: 042
     Dates: start: 20051206, end: 20051215

REACTIONS (2)
  - NEUTROPENIA [None]
  - WHITE BLOOD CELL COUNT DECREASED [None]
